FAERS Safety Report 25707063 (Version 2)
Quarter: 2025Q3

REPORT INFORMATION
  Report Type: Spontaneous
  Country: EU (occurrence: EU)
  Receive Date: 20250820
  Receipt Date: 20250903
  Transmission Date: 20251021
  Serious: Yes (Life-Threatening, Hospitalization, Disabling, Other)
  Sender: MSN LABORATORIES PRIVATE LIMITED
  Company Number: EU-TEVA-2022-PL-2052933

PATIENT

DRUGS (19)
  1. DOXEPIN [Suspect]
     Active Substance: DOXEPIN
     Indication: Mental disorder
     Route: 065
  2. PREGABALIN [Suspect]
     Active Substance: PREGABALIN
     Indication: Mental status changes
     Dosage: 150 MILLIGRAM DAILY;
     Route: 048
     Dates: start: 202005, end: 202009
  3. PREGABALIN [Suspect]
     Active Substance: PREGABALIN
     Route: 048
  4. PREGABALIN [Suspect]
     Active Substance: PREGABALIN
     Dosage: 225 MILLIGRAM, UNK
     Route: 048
     Dates: end: 202009
  5. PREGABALIN [Suspect]
     Active Substance: PREGABALIN
     Route: 048
  6. AGOMELATINE [Suspect]
     Active Substance: AGOMELATINE
     Indication: Mental impairment
     Dosage: 25 MILLIGRAM DAILY
     Route: 065
  7. CHLORPROTHIXENE [Suspect]
     Active Substance: CHLORPROTHIXENE
     Indication: Product used for unknown indication
     Route: 065
  8. DOXYCYCLINE [Suspect]
     Active Substance: DOXYCYCLINE
     Indication: Product used for unknown indication
     Route: 065
  9. ESCITALOPRAM [Suspect]
     Active Substance: ESCITALOPRAM OXALATE
     Indication: Mental disorder
     Route: 065
     Dates: start: 2006
  10. FLUOXETINE [Suspect]
     Active Substance: FLUOXETINE HYDROCHLORIDE
     Indication: Mental disorder
     Route: 065
  11. HYDROXYZINE [Suspect]
     Active Substance: HYDROXYZINE HYDROCHLORIDE
     Indication: Mental disorder
     Route: 065
  12. HYDROXYZINE [Suspect]
     Active Substance: HYDROXYZINE HYDROCHLORIDE
     Indication: Mental disorder
  13. SULPIRIDE [Suspect]
     Active Substance: SULPIRIDE
     Indication: Mental disorder
     Route: 065
  14. TRAZODONE [Suspect]
     Active Substance: TRAZODONE HYDROCHLORIDE
     Indication: Product used for unknown indication
     Route: 065
  15. AMLODIPINE [Concomitant]
     Active Substance: AMLODIPINE BESYLATE
     Indication: Hypertension
     Dosage: 5 MG, QD (2.5 MG, PER DAY IN THE MORNING AND EVENING)
     Route: 065
  16. AMLODIPINE [Concomitant]
     Active Substance: AMLODIPINE BESYLATE
     Route: 065
  17. MIANSERIN [Concomitant]
     Active Substance: MIANSERIN
     Indication: Anxiety
     Route: 065
  18. MIANSERIN [Concomitant]
     Active Substance: MIANSERIN
     Dosage: 60 MG, PER DAY
     Route: 065
  19. NEBIVOLOL [Concomitant]
     Active Substance: NEBIVOLOL
     Indication: Hypertension
     Dosage: 5 MG IN THE EVENING
     Route: 065

REACTIONS (11)
  - Anaphylactic reaction [Unknown]
  - Sedation complication [Recovering/Resolving]
  - Circadian rhythm sleep disorder [Unknown]
  - Enuresis [Recovered/Resolved]
  - Hepatic enzyme increased [Unknown]
  - Drug ineffective [Unknown]
  - Drug intolerance [Unknown]
  - Psychiatric symptom [Unknown]
  - Psychomotor hyperactivity [Unknown]
  - Off label use [Unknown]
  - Hypertension [Unknown]
